FAERS Safety Report 11145674 (Version 1)
Quarter: 2015Q2

REPORT INFORMATION
  Report Type: Spontaneous
  Country: FR (occurrence: FR)
  Receive Date: 20150528
  Receipt Date: 20150528
  Transmission Date: 20150821
  Serious: Yes (Hospitalization)
  Sender: FDA-Public Use
  Company Number: FR-ASTRAZENECA-2015SE50822

PATIENT
  Age: 59 Year
  Sex: Male

DRUGS (17)
  1. INEXIUM [Suspect]
     Active Substance: ESOMEPRAZOLE
     Route: 048
     Dates: start: 20140708, end: 20140715
  2. FORTUM [Concomitant]
     Active Substance: CEFTAZIDIME
  3. FUROSEMIDE. [Concomitant]
     Active Substance: FUROSEMIDE
  4. RAPIFEN [Concomitant]
     Active Substance: ALFENTANIL HYDROCHLORIDE
     Dosage: 0.5 MG/ML, 1 MG UNSPECIFIED FREQUENCY
  5. MIDAZOLAM [Concomitant]
     Active Substance: MIDAZOLAM\MIDAZOLAM HYDROCHLORIDE
  6. UMULINE RAPIDE [Concomitant]
     Active Substance: INSULIN ASPART
     Dosage: 100 IU/1 ML
  7. METRONIDAZOLE. [Concomitant]
     Active Substance: METRONIDAZOLE
  8. HYDROCORTISONE. [Concomitant]
     Active Substance: HYDROCORTISONE
  9. SUFENTANIL [Concomitant]
     Active Substance: SUFENTANIL
  10. HEPARINE SODIQUE PANPHARMA [Concomitant]
     Active Substance: HEPARIN SODIUM
     Dosage: 25000 IU/5 ML
     Route: 042
  11. ZYVOXID [Suspect]
     Active Substance: LINEZOLID
     Indication: BACTERIAL SEPSIS
     Route: 048
     Dates: start: 20140708, end: 20140722
  12. DOBUTAMINE PANPHARMA [Concomitant]
     Dosage: 250 MG/20 ML
     Route: 041
  13. LEVOPHED [Concomitant]
     Active Substance: NOREPINEPHRINE BITARTRATE
  14. CANCIDAS [Concomitant]
     Active Substance: CASPOFUNGIN ACETATE
     Route: 041
  15. CEFEPIME [Concomitant]
     Active Substance: CEFEPIME\CEFEPIME HYDROCHLORIDE
  16. SCOPODERM [Concomitant]
     Active Substance: SCOPOLAMINE
  17. AMIKLIN [Concomitant]
     Active Substance: AMIKACIN SULFATE

REACTIONS (7)
  - Enterobacter infection [Unknown]
  - Candida infection [Unknown]
  - Staphylococcal infection [Unknown]
  - Device related infection [Unknown]
  - Thrombocytopenia [Recovered/Resolved]
  - Cerebral haemorrhage [Recovered/Resolved]
  - Pseudomonas infection [Unknown]

NARRATIVE: CASE EVENT DATE: 20140709
